FAERS Safety Report 12639156 (Version 2)
Quarter: 2016Q3

REPORT INFORMATION
  Report Type: Report from Study
  Country: ES (occurrence: ES)
  Receive Date: 20160810
  Receipt Date: 20160914
  Transmission Date: 20161109
  Serious: Yes (Hospitalization)
  Sender: FDA-Public Use
  Company Number: ES-ROCHE-1808906

PATIENT
  Age: 61 Year
  Sex: Male

DRUGS (6)
  1. OXALIPLATIN. [Suspect]
     Active Substance: OXALIPLATIN
     Indication: COLON CANCER
     Dosage: DAET OF LAST DOSE PRIOR TO SAE: 08/JUL/2016
     Route: 065
     Dates: start: 20160708
  2. SIMVASTATIN. [Concomitant]
     Active Substance: SIMVASTATIN
     Indication: DYSLIPIDAEMIA
     Route: 048
  3. BEVACIZUMAB [Suspect]
     Active Substance: BEVACIZUMAB
     Indication: COLON CANCER
     Dosage: DATE OF LAST DOSE PRIOR TO SAE: 08/JUL/2016
     Route: 065
     Dates: start: 20160708
  4. 5-FU [Suspect]
     Active Substance: FLUOROURACIL
     Dosage: DATE OF LAST DOSE PRIOR TO SAE: 08/JUL/2016?CYCLE 1
     Route: 040
     Dates: start: 20160708
  5. LEUCOVORIN. [Suspect]
     Active Substance: LEUCOVORIN
     Indication: COLON CANCER
     Dosage: DATE OF LAST DOSE PRIOR TO SAE: 08/JUL/2016?CYCLE 1
     Route: 065
     Dates: start: 20160708
  6. 5-FU [Suspect]
     Active Substance: FLUOROURACIL
     Indication: COLON CANCER
     Dosage: DATE OF LAST DOSE PRIOR TO SAE: 08/JUL/2016?CYCLE 1
     Route: 042
     Dates: start: 20160708

REACTIONS (2)
  - Vomiting [Recovered/Resolved]
  - Pyrexia [Recovered/Resolved]

NARRATIVE: CASE EVENT DATE: 20160709
